FAERS Safety Report 4645229-2 (Version None)
Quarter: 2005Q2

REPORT INFORMATION
  Report Type: 
  Country: None (occurrence: None)
  Receive Date: 20050331
  Receipt Date: 20050118
  Transmission Date: 20051028
  Serious: Yes (Hospitalization)
  Sender: FDA-Public Use
  Company Number: 04P-163-0281545-00

PATIENT
  Age: 72 Year
  Sex: Male
  Weight: 96.1626 kg

DRUGS (7)
  1. HUMIRA [Suspect]
     Indication: RHEUMATOID ARTHRITIS
     Dosage: 40 MG, 1 IN 2 WK, SUBCUTANEOUS
     Route: 058
     Dates: start: 20040901, end: 20041102
  2. DIOVAN [Concomitant]
  3. CLOPIDOGREL BISULFATE [Concomitant]
  4. FOLIC ACID [Concomitant]
  5. MESALAMINE [Concomitant]
  6. COLESEVELAM HYDROCHLORIDE [Concomitant]
  7. IRON TABLETS [Concomitant]

REACTIONS (2)
  - PNEUMONIA [None]
  - UPPER RESPIRATORY TRACT INFECTION [None]
